FAERS Safety Report 9691830 (Version 1)
Quarter: 2013Q4

REPORT INFORMATION
  Report Type: Spontaneous
  Country: US (occurrence: US)
  Receive Date: 20131117
  Receipt Date: 20131117
  Transmission Date: 20140711
  Serious: Yes (Other)
  Sender: FDA-Public Use
  Company Number: US-ASTRAZENECA-2013SE82802

PATIENT
  Age: 60 Year
  Sex: Male

DRUGS (1)
  1. BRILINTA [Suspect]
     Dosage: UNKNOWN
     Route: 048

REACTIONS (3)
  - Myocardial infarction [Unknown]
  - Cough [Unknown]
  - Dyspnoea [Unknown]
